FAERS Safety Report 16835486 (Version 1)
Quarter: 2019Q3

REPORT INFORMATION
  Report Type: Spontaneous
  Country: US (occurrence: US)
  Receive Date: 20190920
  Receipt Date: 20190920
  Transmission Date: 20191005
  Serious: No
  Sender: FDA-Public Use
  Company Number: US-AMARIN PHARMA, INC.-2019AMR000047

PATIENT
  Age: 62 Year
  Sex: Female
  Weight: 72.64 kg

DRUGS (6)
  1. VASCEPA [Suspect]
     Active Substance: ICOSAPENT ETHYL
     Indication: ARTERIOSCLEROSIS
     Route: 048
     Dates: start: 2016
  2. RANEXA [Concomitant]
     Active Substance: RANOLAZINE
     Indication: BLOOD CHOLESTEROL ABNORMAL
     Route: 048
  3. VASCEPA [Suspect]
     Active Substance: ICOSAPENT ETHYL
     Indication: MYOCARDIAL INFARCTION
  4. REPATHA [Concomitant]
     Active Substance: EVOLOCUMAB
     Indication: BLOOD CHOLESTEROL ABNORMAL
  5. METOPROLOL. [Concomitant]
     Active Substance: METOPROLOL
     Indication: HEART RATE ABNORMAL
     Route: 048
  6. BABY ASPIRIN [Concomitant]
     Active Substance: ASPIRIN
     Indication: MYOCARDIAL INFARCTION
     Route: 048

REACTIONS (6)
  - Nausea [Unknown]
  - Product odour abnormal [Unknown]
  - Product colour issue [Unknown]
  - Product leakage [Unknown]
  - Product label issue [Unknown]
  - Product adhesion issue [Unknown]

NARRATIVE: CASE EVENT DATE: 201902
